FAERS Safety Report 24579362 (Version 3)
Quarter: 2025Q3

REPORT INFORMATION
  Report Type: Report from Study
  Country: TW (occurrence: TW)
  Receive Date: 20241105
  Receipt Date: 20250803
  Transmission Date: 20251020
  Serious: Yes (Death, Hospitalization, Other)
  Sender: ALEXION PHARMACEUTICALS
  Company Number: TW-AstraZeneca-CH-00714172A

PATIENT
  Age: 50 Year
  Sex: Male
  Weight: 64 kg

DRUGS (2)
  1. DURVALUMAB [Suspect]
     Active Substance: DURVALUMAB
     Indication: Hepatic cancer
     Dates: start: 20240912, end: 20240912
  2. IMJUDO [Suspect]
     Active Substance: TREMELIMUMAB\TREMELIMUMAB-ACTL
     Indication: Hepatic cancer
     Dates: start: 20240913, end: 20240913

REACTIONS (7)
  - Death [Fatal]
  - Oedema [Not Recovered/Not Resolved]
  - Gastrointestinal haemorrhage [Not Recovered/Not Resolved]
  - Oxygen consumption decreased [Not Recovered/Not Resolved]
  - Somnolence [Not Recovered/Not Resolved]
  - Condition aggravated [Unknown]
  - Depressed level of consciousness [Unknown]

NARRATIVE: CASE EVENT DATE: 20240923
